FAERS Safety Report 14840113 (Version 3)
Quarter: 2024Q3

REPORT INFORMATION
  Report Type: Report from Study
  Country: DE (occurrence: DE)
  Receive Date: 20180503
  Receipt Date: 20240717
  Transmission Date: 20241017
  Serious: Yes (Hospitalization, Other)
  Sender: ACCORD
  Company Number: None

PATIENT
  Age: 78 Year
  Sex: Male
  Weight: 84 kg

DRUGS (28)
  1. GEMCITABINE [Suspect]
     Active Substance: GEMCITABINE
     Indication: Pancreatic carcinoma metastatic
     Dosage: 2050 MG, QD (1000 MG/M2), INTRAVENOUS INFUSION
     Dates: start: 20170404, end: 20170418
  2. ABRAXANE [Suspect]
     Active Substance: PACLITAXEL
     Indication: Pancreatic carcinoma metastatic
     Dosage: 256 MG,QD (125 MG/M2 ), INTRAVENOUS INFUSION
     Dates: start: 20170307, end: 20170418
  3. ZOPICLONE [Concomitant]
     Active Substance: ZOPICLONE
     Indication: Constipation
     Dosage: 7.5 MILLIGRAM
     Route: 048
  4. Novalgin [Concomitant]
     Indication: Product used for unknown indication
     Dosage: 4000MG
     Route: 048
  5. MOVICOL [Concomitant]
     Active Substance: POLYETHYLENE GLYCOL 3350\POTASSIUM CHLORIDE\SODIUM BICARBONATE\SODIUM CHLORIDE
     Indication: Constipation
     Dosage: 7.5 MILLIGRAM
     Route: 048
  6. ZOFRAN [Concomitant]
     Active Substance: ONDANSETRON HYDROCHLORIDE
     Indication: Nausea
     Dosage: 8 MG, UNK
     Dates: start: 20170404, end: 20170418
  7. ABSTRAL [Concomitant]
     Active Substance: FENTANYL CITRATE
     Indication: Pain
     Dosage: AS REQUIRED, UP TO 4/DAY
     Route: 060
  8. DOMPERIDONE [Concomitant]
     Active Substance: DOMPERIDONE
     Dosage: 30 MG
     Route: 048
  9. SODIUM CHLORIDE [Concomitant]
     Active Substance: SODIUM CHLORIDE
     Route: 041
     Dates: start: 20170411, end: 20170411
  10. HALOPERIDOL [Concomitant]
     Active Substance: HALOPERIDOL
     Indication: Constipation
     Dosage: 15 MILLIGRAM, QD
     Route: 048
  11. HYDROMORPHONE [Concomitant]
     Active Substance: HYDROMORPHONE
     Indication: Pain
     Dosage: REDUCED FROM 2X24 MG?DOSE 2 (UNK UNIT)
     Route: 048
     Dates: start: 20170214
  12. ONDANSETRON [Concomitant]
     Active Substance: ONDANSETRON
     Route: 041
  13. PRAMIPEXOLE [Concomitant]
     Active Substance: PRAMIPEXOLE\PRAMIPEXOLE DIHYDROCHLORIDE
     Indication: Product used for unknown indication
     Dosage: 1.57 MILLIGRAM?REDUCED FROM 2XDAILY
     Route: 048
     Dates: start: 20170413
  14. PANTOPRAZOLE SODIUM [Concomitant]
     Active Substance: PANTOPRAZOLE SODIUM
     Indication: Constipation
     Dosage: 80 MILLIGRAM
     Route: 048
  15. CLOPIDOGREL [Concomitant]
     Active Substance: CLOPIDOGREL BISULFATE
     Dosage: 76 MILLIGRAM
     Route: 048
  16. METOCLOPRAMIDE [Concomitant]
     Active Substance: METOCLOPRAMIDE
     Indication: Nausea
     Dosage: 30 MG
     Route: 048
     Dates: start: 20170404, end: 20170418
  17. DIMENHYDRINATE [Concomitant]
     Active Substance: DIMENHYDRINATE
     Indication: Nausea
     Dosage: 2-3 DAILY
     Route: 048
  18. MCP [Concomitant]
     Active Substance: METOCLOPRAMIDE HYDROCHLORIDE
     Route: 048
     Dates: start: 20170411, end: 20170411
  19. HYDROMORPHONE [Concomitant]
     Active Substance: HYDROMORPHONE
     Dosage: 40 MG, QD
     Route: 048
     Dates: start: 20170214
  20. SODIUM CHLORIDE [Concomitant]
     Active Substance: SODIUM CHLORIDE
     Dosage: 500 ML, UNK
  21. HYDROMORPHONE [Concomitant]
     Active Substance: HYDROMORPHONE
     Indication: Pain
     Dosage: 3 MG, QD
     Route: 048
     Dates: start: 20170214
  22. CLOPIDOGREL [Concomitant]
     Active Substance: CLOPIDOGREL BISULFATE
     Dosage: 75 MILLIGRAM
     Route: 048
  23. MCP [Concomitant]
     Active Substance: METOCLOPRAMIDE HYDROCHLORIDE
     Dosage: 30 MG, QD
     Route: 048
     Dates: start: 20170404, end: 20170404
  24. HYDROMORPHONE [Concomitant]
     Active Substance: HYDROMORPHONE
     Dosage: 2 IN THE MORNING 1 IN THE AFTERNOON AND 2.4 IN THE EVENING
     Route: 048
  25. PANTOPRAZOLE SODIUM [Concomitant]
     Active Substance: PANTOPRAZOLE SODIUM
     Indication: Constipation
     Dosage: 40 MG, QD
     Route: 048
  26. MCP [Concomitant]
     Active Substance: METOCLOPRAMIDE HYDROCHLORIDE
     Dosage: 30 MG, QD
     Route: 048
     Dates: start: 20170418, end: 20170418
  27. Novalgin [Concomitant]
     Indication: Product used for unknown indication
     Dosage: 120 DRP, QD
     Route: 048
  28. ZOFRAN [Concomitant]
     Active Substance: ONDANSETRON HYDROCHLORIDE
     Indication: Nausea
     Dosage: 16 MG, QD
     Dates: start: 20170404, end: 20170418

REACTIONS (7)
  - Neutropenia [Recovered/Resolved]
  - Abdominal pain [Recovered/Resolved]
  - Infection [Recovered/Resolved]
  - C-reactive protein increased [Not Recovered/Not Resolved]
  - Thrombocytopenia [Recovered/Resolved]
  - Leukopenia [Recovered/Resolved]
  - Device related infection [Recovered/Resolved]

NARRATIVE: CASE EVENT DATE: 20170325
